FAERS Safety Report 7241197-8 (Version None)
Quarter: 2011Q1

REPORT INFORMATION
  Report Type: 
  Country: None (occurrence: None)
  Receive Date: 20110124
  Receipt Date: 20110117
  Transmission Date: 20110831
  Serious: Yes (Other)
  Sender: FDA-Public Use
  Company Number: AU-ROCHE-742275

PATIENT
  Sex: Female

DRUGS (5)
  1. XELODA [Suspect]
     Route: 065
  2. FOLINIC ACID [Suspect]
     Route: 065
  3. OXALIPLATIN [Suspect]
     Dosage: DOSE UNSPECIFIED
     Route: 065
  4. AVASTIN [Suspect]
     Dosage: FORM: INFUSION
     Route: 065
  5. FLUOROURACIL [Suspect]
     Route: 065

REACTIONS (2)
  - PARAESTHESIA ORAL [None]
  - BLOOD PRESSURE INCREASED [None]
